FAERS Safety Report 9912678 (Version 1)
Quarter: 2014Q1

REPORT INFORMATION
  Report Type: Spontaneous
  Country: US (occurrence: None)
  Receive Date: 20140212
  Receipt Date: 20140212
  Transmission Date: 20141002
  Serious: Yes (Other)
  Sender: FDA-Public Use
  Company Number: 2014-US-001233

PATIENT
  Age: 18 Year
  Sex: Female
  Weight: 44.9 kg

DRUGS (14)
  1. XYREM [Suspect]
     Indication: PRODUCT USED FOR UNKNOWN INDICATION
     Route: 048
     Dates: start: 20131129
  2. REMICADE [Concomitant]
  3. PENTASA (MESLAZINE) [Concomitant]
  4. ZOMIG (ZOLMITRIPTAN) [Concomitant]
  5. ZYRTEC (CETIRIZINE HYDROCHLORIDE) [Concomitant]
  6. NASONEX (MOMETASONE FUROATE) [Concomitant]
  7. OXSORALEN (METHOXSALEN) [Concomitant]
  8. HYDROXYZINE (HYDROXYZINE HYDROCHLORIDE) [Concomitant]
  9. MIRALAX (MACROGOL) [Concomitant]
  10. PANTOPRAZOLE (PANTOPRAZOLE SODIUM SESQUIHYDRATE [Concomitant]
  11. ZANTAC (RANITIDINE HYDROCHLORIDE) [Concomitant]
  12. HYOSCYAMINE (HYOSCYAMINE) [Concomitant]
  13. VYVANSE (LISDEXAMFETAMINE MESILATE) [Concomitant]
  14. LEXAPRO (ESCITALOPRAM OXALATE) [Concomitant]

REACTIONS (1)
  - Crohn^s disease [None]
